FAERS Safety Report 4734943-6 (Version None)
Quarter: 2005Q3

REPORT INFORMATION
  Report Type: 
  Country: None (occurrence: None)
  Receive Date: 20050804
  Receipt Date: 20050727
  Transmission Date: 20060218
  Serious: Yes (Hospitalization)
  Sender: FDA-Public Use
  Company Number: US-KINGPHARMUSA00001-K200501007

PATIENT
  Age: 82 Year
  Sex: Male

DRUGS (9)
  1. ALTACE [Suspect]
     Dosage: 1.25 MG, QD
     Route: 048
     Dates: end: 20050513
  2. PYOSTACINE [Suspect]
     Dosage: 3 G, QD
     Route: 048
     Dates: start: 20050511, end: 20050516
  3. OFLOCET [Suspect]
     Dosage: 200 MG, QD
     Route: 048
     Dates: start: 20050505, end: 20050506
  4. OFLOCET [Suspect]
     Dosage: 200 MG, QD
     Route: 048
     Dates: start: 20050509, end: 20050510
  5. LIPANTHYL ^BRISTOL-MYERS SQUIBB^ [Suspect]
     Dosage: 200 MG, QD
     Route: 048
     Dates: end: 20050511
  6. AUGMENTIN '125' [Suspect]
     Dosage: 3 G, QD
     Route: 042
     Dates: start: 20050505, end: 20050511
  7. SERETIDE ^ALLEN + HANBURYS LTD^ [Suspect]
     Dates: start: 20050505, end: 20050519
  8. DIFFU-K [Concomitant]
     Dates: start: 20050505, end: 20050510
  9. VENTOLIN [Concomitant]
     Dosage: UNK, UNK
     Dates: end: 20050517

REACTIONS (9)
  - ABSCESS [None]
  - AGRANULOCYTOSIS [None]
  - ANAEMIA [None]
  - ASTHENIA [None]
  - GASTRIC DISORDER [None]
  - GASTRIC ULCER [None]
  - INFLAMMATION [None]
  - PYREXIA [None]
  - SEPSIS SYNDROME [None]
